FAERS Safety Report 7468452-0 (Version None)
Quarter: 2011Q2

REPORT INFORMATION
  Report Type: 
  Country: None (occurrence: None)
  Receive Date: 20110509
  Receipt Date: 20110502
  Transmission Date: 20111010
  Serious: Yes (Hospitalization, Other)
  Sender: FDA-Public Use
  Company Number: PT-AMGEN-PRTSP2010003276

PATIENT
  Sex: Female

DRUGS (8)
  1. VITAMIN C                          /00008001/ [Concomitant]
     Dosage: UNK
  2. OMEPRAZOLE [Concomitant]
     Dosage: UNK
  3. CALCIUM CARBONATE W/COLECALCIFEROL [Concomitant]
     Dosage: UNK
  4. OVESTIN [Concomitant]
     Dosage: UNK
  5. SYMBICORT [Concomitant]
     Indication: PULMONARY FIBROSIS
     Dosage: UNK
  6. METICORTEN [Concomitant]
     Indication: RHEUMATOID ARTHRITIS
  7. FLUIMUCIL                          /00082801/ [Concomitant]
     Indication: PULMONARY FIBROSIS
     Dosage: UNK
  8. ENBREL [Suspect]
     Indication: RHEUMATOID ARTHRITIS
     Dosage: 50 MG, QWK
     Route: 065
     Dates: start: 20010101, end: 20101001

REACTIONS (3)
  - CONDITION AGGRAVATED [None]
  - HYPERGAMMAGLOBULINAEMIA BENIGN MONOCLONAL [None]
  - URINARY TRACT INFECTION [None]
